FAERS Safety Report 7564706-8 (Version None)
Quarter: 2011Q2

REPORT INFORMATION
  Report Type: 
  Country: None (occurrence: None)
  Receive Date: 20110622
  Receipt Date: 20101029
  Transmission Date: 20111010
  Serious: Yes (Other)
  Sender: FDA-Public Use
  Company Number: US-MYLANLABS-2010S1017084

PATIENT
  Age: 37 Year
  Sex: Male
  Weight: 108.86 kg

DRUGS (11)
  1. PRILOSEC [Concomitant]
  2. NORVASC [Concomitant]
  3. LEXAPRO [Concomitant]
  4. LAMICTAL [Concomitant]
  5. TENORMIN [Concomitant]
  6. CLOZAPINE [Suspect]
     Route: 048
     Dates: end: 20100801
  7. WELLBUTRIN XL [Concomitant]
  8. TRAZODONE HCL [Concomitant]
  9. ACYCLOVIR [Concomitant]
  10. ZOCOR [Concomitant]
  11. LITHOBID [Concomitant]

REACTIONS (2)
  - GRANULOCYTOPENIA [None]
  - LEUKOPENIA [None]
